FAERS Safety Report 6315047-8 (Version None)
Quarter: 2009Q3

REPORT INFORMATION
  Report Type: 
  Country: None (occurrence: None)
  Receive Date: 20090818
  Receipt Date: 20090818
  Transmission Date: 20100115
  Serious: No
  Sender: FDA-Public Use
  Company Number: None

PATIENT
  Age: 42 Year
  Sex: Female
  Weight: 55.7924 kg

DRUGS (1)
  1. FLUOXETINE [Suspect]
     Indication: MOOD SWINGS
     Dosage: 1 PIL DAILY PO
     Route: 048
     Dates: start: 20090811, end: 20090817

REACTIONS (3)
  - BALANCE DISORDER [None]
  - DIZZINESS [None]
  - MUSCULAR WEAKNESS [None]
